FAERS Safety Report 12094133 (Version 1)
Quarter: 2016Q1

REPORT INFORMATION
  Report Type: Spontaneous
  Country: US (occurrence: US)
  Receive Date: 20160219
  Receipt Date: 20160219
  Transmission Date: 20160526
  Serious: No
  Sender: FDA-Public Use
  Company Number: US-009507513-1602USA008729

PATIENT
  Sex: Female
  Weight: 65.76 kg

DRUGS (2)
  1. NEXPLANON [Suspect]
     Active Substance: ETONOGESTREL
     Indication: CONTRACEPTION
     Dosage: 68MG/THREE YEARS
     Route: 059
     Dates: start: 20150608, end: 20160216
  2. NEXPLANON [Suspect]
     Active Substance: ETONOGESTREL
     Dosage: 68MG/THREE YEARS
     Route: 059
     Dates: start: 20160216

REACTIONS (3)
  - Application site discomfort [Unknown]
  - Device breakage [Recovered/Resolved]
  - Implant site pain [Unknown]
